FAERS Safety Report 7103175-9 (Version None)
Quarter: 2010Q4

REPORT INFORMATION
  Report Type: 
  Country: None (occurrence: None)
  Receive Date: 20101115
  Receipt Date: 20101109
  Transmission Date: 20110411
  Serious: Yes (Hospitalization, Disabling, Other)
  Sender: FDA-Public Use
  Company Number: US-MERCK-0812USA05213

PATIENT
  Age: 57 Year
  Sex: Female
  Weight: 82 kg

DRUGS (19)
  1. FOSAMAX [Suspect]
     Indication: OSTEOPOROSIS
     Route: 048
     Dates: start: 20050301, end: 20080204
  2. FOSAMAX [Suspect]
     Route: 048
     Dates: start: 20040701
  3. BACLOFEN [Concomitant]
     Indication: MUSCLE RELAXANT THERAPY
     Route: 065
     Dates: start: 20040813
  4. ALBUTEROL [Concomitant]
     Route: 065
     Dates: start: 20040813
  5. LEVOTHYROXINE SODIUM [Concomitant]
     Indication: THYROID DISORDER
     Route: 065
     Dates: start: 20040813
  6. ZOLOFT [Concomitant]
     Indication: DEPRESSION
     Route: 065
     Dates: start: 20041026
  7. AMITRIPTYLINE HYDROCHLORIDE [Concomitant]
     Indication: SLEEP DISORDER
     Route: 065
     Dates: start: 20041026
  8. CLONAZEPAM [Concomitant]
     Indication: PANIC DISORDER
     Route: 065
     Dates: start: 20041026
  9. CEPHALEXIN [Concomitant]
     Route: 065
     Dates: start: 20050127, end: 20081119
  10. HYDROCODONE [Concomitant]
     Indication: PAIN
     Route: 065
     Dates: start: 20050126
  11. NITROGLYCERIN [Concomitant]
     Indication: ANGINA PECTORIS
     Route: 065
     Dates: start: 20050210
  12. POTASSIUM (UNSPECIFIED) [Concomitant]
     Route: 065
     Dates: start: 20040810
  13. METHOTREXATE [Concomitant]
     Indication: RHEUMATOID ARTHRITIS
     Route: 065
     Dates: start: 20041026, end: 20080101
  14. LEVOTHROID [Concomitant]
     Indication: THYROID DISORDER
     Route: 065
     Dates: start: 20041130
  15. VERAPAMIL [Concomitant]
     Indication: TACHYCARDIA
     Route: 065
     Dates: start: 20050108
  16. KLOR-CON [Concomitant]
     Route: 065
     Dates: start: 20050519
  17. FUROSEMIDE [Concomitant]
     Indication: CARDIAC FAILURE CONGESTIVE
     Route: 065
     Dates: start: 20041130
  18. ISOSORBIDE DINITRATE [Concomitant]
     Indication: ANGINA PECTORIS
     Route: 065
     Dates: start: 20050108
  19. CYMBALTA [Concomitant]
     Indication: DEPRESSION
     Route: 065
     Dates: start: 20050701

REACTIONS (24)
  - ANGINA PECTORIS [None]
  - ANXIETY [None]
  - ASTHENIA [None]
  - CARDIAC FAILURE CONGESTIVE [None]
  - CARDIAC MURMUR [None]
  - CHEST PAIN [None]
  - CHRONIC OBSTRUCTIVE PULMONARY DISEASE [None]
  - GASTRITIS [None]
  - GINGIVAL INFECTION [None]
  - GINGIVAL PAIN [None]
  - HAEMORRHAGE SUBCUTANEOUS [None]
  - IMPAIRED HEALING [None]
  - INFECTION [None]
  - JAW CYST [None]
  - JOINT SWELLING [None]
  - MIGRAINE [None]
  - MITRAL VALVE PROLAPSE [None]
  - MYOFASCIAL PAIN SYNDROME [None]
  - OSTEONECROSIS OF JAW [None]
  - REFUSAL OF TREATMENT BY PATIENT [None]
  - TEMPOROMANDIBULAR JOINT SYNDROME [None]
  - TOOTH DISORDER [None]
  - TOOTH INFECTION [None]
  - WEIGHT INCREASED [None]
